FAERS Safety Report 8795210 (Version 2)
Quarter: 2015Q3

REPORT INFORMATION
  Report Type: Report from Study
  Country: US (occurrence: US)
  Receive Date: 20120917
  Receipt Date: 20150707
  Transmission Date: 20151125
  Serious: Yes (Death, Other)
  Sender: FDA-Public Use
  Company Number: US-ROCHE-1126062

PATIENT
  Sex: Female

DRUGS (28)
  1. IXEMPRA [Concomitant]
     Active Substance: IXABEPILONE
     Route: 065
  2. PYRIDOXINE [Concomitant]
     Active Substance: PYRIDOXINE
     Route: 065
  3. GEMZAR [Concomitant]
     Active Substance: GEMCITABINE HYDROCHLORIDE
  4. VINORELBINE [Concomitant]
     Active Substance: VINORELBINE\VINORELBINE TARTRATE
     Route: 042
  5. AMBIEN [Concomitant]
     Active Substance: ZOLPIDEM TARTRATE
     Route: 065
  6. ARANESP [Concomitant]
     Active Substance: DARBEPOETIN ALFA
     Route: 058
  7. NAVELBINE [Concomitant]
     Active Substance: VINORELBINE TARTRATE
     Route: 042
  8. AVASTIN [Suspect]
     Active Substance: BEVACIZUMAB
     Route: 065
  9. TYLENOL [Concomitant]
     Active Substance: ACETAMINOPHEN
     Route: 042
  10. ABRAXANE [Concomitant]
     Active Substance: PACLITAXEL
  11. AVASTIN [Suspect]
     Active Substance: BEVACIZUMAB
     Indication: BREAST CANCER FEMALE
     Route: 042
     Dates: start: 20070821
  12. LOMOTIL (ATROPINE SULFATE/DIPHENOXYLATE HYDROCHLORIDE) [Concomitant]
     Route: 065
  13. BENADRYL [Concomitant]
     Active Substance: DIPHENHYDRAMINE HYDROCHLORIDE
     Route: 042
  14. ADRIAMYCIN [Concomitant]
     Active Substance: DOXORUBICIN HYDROCHLORIDE
     Route: 065
  15. HEPARIN [Concomitant]
     Active Substance: HEPARIN SODIUM
     Route: 042
  16. LISINOPRIL ACTAVIS [Concomitant]
     Active Substance: LISINOPRIL
  17. PRILOSEC [Concomitant]
     Active Substance: OMEPRAZOLE MAGNESIUM
  18. AVASTIN [Suspect]
     Active Substance: BEVACIZUMAB
     Route: 042
  19. ACIPHEX [Concomitant]
     Active Substance: RABEPRAZOLE SODIUM
  20. ALOXI [Concomitant]
     Active Substance: PALONOSETRON HYDROCHLORIDE
     Route: 042
  21. TAXOTERE [Concomitant]
     Active Substance: DOCETAXEL
     Route: 065
  22. NAVELBINE [Concomitant]
     Active Substance: VINORELBINE TARTRATE
     Route: 042
  23. XELODA [Suspect]
     Active Substance: CAPECITABINE
     Indication: BREAST CANCER FEMALE
     Route: 048
  24. NEURONTIN [Concomitant]
     Active Substance: GABAPENTIN
     Route: 065
  25. PEPCID [Concomitant]
     Active Substance: FAMOTIDINE
  26. PEGFILGRASTIM [Concomitant]
     Active Substance: PEGFILGRASTIM
     Route: 065
  27. CARBOPLATIN. [Concomitant]
     Active Substance: CARBOPLATIN
  28. DIGOXIN. [Concomitant]
     Active Substance: DIGOXIN

REACTIONS (33)
  - Local swelling [Unknown]
  - Disease progression [Unknown]
  - Oropharyngeal pain [Unknown]
  - Weight decreased [Unknown]
  - Muscle spasms [Unknown]
  - Abdominal pain upper [Unknown]
  - Swelling [Unknown]
  - Dermatitis acneiform [Unknown]
  - Hiccups [Recovered/Resolved]
  - Headache [Unknown]
  - Throat irritation [Unknown]
  - Neuropathy peripheral [Unknown]
  - Off label use [Unknown]
  - Abdominal discomfort [Unknown]
  - Arthralgia [Unknown]
  - Dry mouth [Unknown]
  - Throat tightness [Unknown]
  - Chest pain [Unknown]
  - Faeces hard [Unknown]
  - Fatigue [Unknown]
  - Lacrimation increased [Unknown]
  - Nausea [Unknown]
  - Pain in extremity [Unknown]
  - Death [Fatal]
  - Dizziness [Unknown]
  - Stomatitis [Unknown]
  - Palpitations [Unknown]
  - Joint swelling [Unknown]
  - Pancytopenia [Unknown]
  - Cardiac failure congestive [Unknown]
  - Parotitis [Unknown]
  - Bone pain [Unknown]
  - Dyspnoea exertional [Unknown]
